FAERS Safety Report 16885745 (Version 2)
Quarter: 2019Q4

REPORT INFORMATION
  Report Type: Spontaneous
  Country: US (occurrence: US)
  Receive Date: 20191004
  Receipt Date: 20191018
  Transmission Date: 20200122
  Serious: Yes (Other)
  Sender: FDA-Public Use
  Company Number: US-AMGEN-USASP2019160929

PATIENT
  Age: 69 Year
  Sex: Female

DRUGS (1)
  1. PROLIA [Suspect]
     Active Substance: DENOSUMAB
     Indication: OSTEOPOROSIS POSTMENOPAUSAL
     Dosage: 60 MILLIGRAM, Q6MO
     Route: 065

REACTIONS (5)
  - Intervertebral disc protrusion [Not Recovered/Not Resolved]
  - Kidney infection [Unknown]
  - Chronic kidney disease [Unknown]
  - Cystitis [Unknown]
  - Hand fracture [Recovering/Resolving]

NARRATIVE: CASE EVENT DATE: 20190319
